FAERS Safety Report 10532365 (Version 1)
Quarter: 2014Q4

REPORT INFORMATION
  Report Type: Spontaneous
  Country: US (occurrence: US)
  Receive Date: 20141021
  Receipt Date: 20141021
  Transmission Date: 20150529
  Serious: Yes (Other)
  Sender: FDA-Public Use
  Company Number: US-ABBVIE-14P-163-1297089-00

PATIENT
  Age: 61 Year
  Sex: Female

DRUGS (1)
  1. SYNTHROID [Suspect]
     Active Substance: LEVOTHYROXINE SODIUM
     Indication: PRODUCT USED FOR UNKNOWN INDICATION
     Route: 065

REACTIONS (5)
  - Surgery [Unknown]
  - Fatigue [Unknown]
  - Thyroidectomy [Unknown]
  - Feeling abnormal [Unknown]
  - Back pain [Unknown]

NARRATIVE: CASE EVENT DATE: 1999
